FAERS Safety Report 5863848-2 (Version None)
Quarter: 2008Q3

REPORT INFORMATION
  Report Type: 
  Country: None (occurrence: None)
  Receive Date: 20080827
  Receipt Date: 20080811
  Transmission Date: 20090109
  Serious: Yes (Life-Threatening, Hospitalization)
  Sender: FDA-Public Use
  Company Number: US019477

PATIENT
  Age: 54 Year
  Sex: Male
  Weight: 113.6 kg

DRUGS (5)
  1. PROVIGIL [Suspect]
     Indication: NARCOLEPSY
     Dosage: 100 MG QD ORAL
     Route: 048
     Dates: start: 20061001, end: 20061101
  2. PROVIGIL [Suspect]
     Indication: NARCOLEPSY
     Dosage: 200 MG QD ORAL
     Route: 048
     Dates: start: 20061101, end: 20070101
  3. DEXEDRINE [Suspect]
     Indication: ATTENTION DEFICIT/HYPERACTIVITY DISORDER
     Dosage: 40 MG QD ORAL
     Route: 048
     Dates: start: 19920101
  4. CYMBALTA [Concomitant]
  5. GABAPENTIN [Concomitant]

REACTIONS (19)
  - ACUTE MYOCARDIAL INFARCTION [None]
  - AGGRESSION [None]
  - AGITATION POSTOPERATIVE [None]
  - APPARENT DEATH [None]
  - BRAIN INJURY [None]
  - CARDIOGENIC SHOCK [None]
  - CARDIOMEGALY [None]
  - CONFUSION POSTOPERATIVE [None]
  - CORONARY ARTERY OCCLUSION [None]
  - DELUSION [None]
  - DRUG RASH WITH EOSINOPHILIA AND SYSTEMIC SYMPTOMS [None]
  - FALL [None]
  - GAIT DISTURBANCE [None]
  - HYPERSOMNIA [None]
  - INFLUENZA LIKE ILLNESS [None]
  - NO THERAPEUTIC RESPONSE [None]
  - PAIN IN JAW [None]
  - RENAL FAILURE ACUTE [None]
  - SPEECH DISORDER [None]
